FAERS Safety Report 8521344 (Version 6)
Quarter: 2013Q1

REPORT INFORMATION
  Report Type: Spontaneous
  Country: US (occurrence: US)
  Receive Date: 20120419
  Receipt Date: 20130215
  Transmission Date: 20140127
  Serious: Yes (Other)
  Sender: FDA-Public Use
  Company Number: US-PFIZER INC-2009201742

PATIENT
  Age: 70 Year
  Sex: Female
  Weight: 53.52 kg

DRUGS (16)
  1. XALATAN [Suspect]
     Indication: GLAUCOMA
     Dosage: 1 DROP IN EACH EYE ONCE A DAY
     Route: 047
     Dates: start: 200401
  2. XALATAN [Suspect]
     Indication: GLAUCOMA
     Dosage: UNK
     Route: 047
     Dates: start: 2008, end: 2011
  3. XALATAN [Suspect]
     Indication: GLAUCOMA
     Dosage: 1X/DAY
     Route: 047
     Dates: start: 201111
  4. XALATAN [Suspect]
     Dosage: UNK DAILY
  5. XALATAN [Suspect]
     Dosage: 0.005 % INTILL 1 DROP QHS OU
  6. TIMOLOL MALEATE [Suspect]
     Indication: GLAUCOMA
     Dosage: UNK
     Route: 047
     Dates: start: 2006, end: 200810
  7. TIMOLOL MALEATE [Suspect]
     Dosage: UNK
     Route: 047
     Dates: start: 2006, end: 2008
  8. LATANOPROST [Suspect]
     Indication: GLAUCOMA
     Dosage: UNK
     Route: 047
     Dates: start: 201111, end: 2011
  9. TRUSOPT [Suspect]
     Indication: GLAUCOMA
     Dosage: UNK
     Route: 047
     Dates: start: 2006, end: 2008
  10. ANTIHYPERTENSIVES [Concomitant]
     Dosage: UNK
  11. LEVOTHYROXINE SODIUM [Concomitant]
     Indication: THYROID DISORDER
     Dosage: UNK
  12. LEVOTHYROXINE SODIUM [Concomitant]
     Indication: HYPOTHYROIDISM
  13. SYNTHROID [Concomitant]
     Indication: THYROID DISORDER
     Dosage: 0.75 UG, DAILY
     Route: 048
  14. SYNTHROID [Concomitant]
     Indication: HYPOTHYROIDISM
  15. AVAPRO [Concomitant]
     Indication: HYPERTENSION
     Dosage: UNK
     Route: 048
  16. LOSARTAN [Concomitant]
     Indication: HYPERTENSION
     Dosage: 100 MG, DAILY
     Route: 048

REACTIONS (23)
  - Hyperthyroidism [Unknown]
  - Dyspnoea [Unknown]
  - Intraocular pressure increased [Unknown]
  - Blindness [Unknown]
  - Paralysis [Unknown]
  - Thyroid disorder [Unknown]
  - Reading disorder [Not Recovered/Not Resolved]
  - Eyelid irritation [Not Recovered/Not Resolved]
  - Eyelid oedema [Not Recovered/Not Resolved]
  - Hair disorder [Recovering/Resolving]
  - Tinnitus [Recovered/Resolved]
  - Poor quality drug administered [Unknown]
  - Influenza [Not Recovered/Not Resolved]
  - Chest discomfort [Not Recovered/Not Resolved]
  - Growth of eyelashes [Recovered/Resolved]
  - Alopecia [Unknown]
  - Pain [Unknown]
  - Body height decreased [Unknown]
  - Hypersensitivity [Recovering/Resolving]
  - Fear [Recovering/Resolving]
  - Feeling abnormal [Recovering/Resolving]
  - Dizziness [Not Recovered/Not Resolved]
  - Tooth disorder [Unknown]
